FAERS Safety Report 4686356-3 (Version None)
Quarter: 2005Q2

REPORT INFORMATION
  Report Type: 
  Country: None (occurrence: None)
  Receive Date: 20050606
  Receipt Date: 20050524
  Transmission Date: 20051028
  Serious: Yes (Death)
  Sender: FDA-Public Use
  Company Number: 2005078472

PATIENT
  Age: 27 Year

DRUGS (2)
  1. MISOPROSTOL [Suspect]
     Indication: ABORTION INDUCED
     Dosage: ONCE (1 IN 1 D), VAGINAL
     Route: 067
     Dates: start: 20010825, end: 20010827
  2. MIFEPRISTONE (MIFEPRISTONE) [Suspect]
     Indication: ABORTION INDUCED
     Dosage: ONCE (1 IN 1 D), ORAL
     Route: 048
     Dates: start: 20010823, end: 20010823

REACTIONS (38)
  - ABDOMINAL PAIN [None]
  - ASCITES [None]
  - BACTERIAL INFECTION [None]
  - BIOPSY ENDOMETRIUM ABNORMAL [None]
  - BLOOD ALBUMIN DECREASED [None]
  - BLOOD CALCIUM DECREASED [None]
  - BLOOD POTASSIUM DECREASED [None]
  - BLOOD SODIUM DECREASED [None]
  - CARDIAC ARREST [None]
  - CERVIX DISORDER [None]
  - CHILLS [None]
  - CLOSTRIDIUM COLITIS [None]
  - DEHYDRATION [None]
  - DIZZINESS [None]
  - ENDOMETRITIS [None]
  - FULL BLOOD COUNT ABNORMAL [None]
  - GENERAL PHYSICAL HEALTH DETERIORATION [None]
  - HAEMODYNAMIC INSTABILITY [None]
  - HAEMORRHAGE [None]
  - HYPOTENSION [None]
  - MULTI-ORGAN FAILURE [None]
  - MUSCLE SPASMS [None]
  - NAUSEA [None]
  - OXYGEN SATURATION DECREASED [None]
  - PALPITATIONS [None]
  - PELVIC PAIN [None]
  - PEPTOSTREPTOCOCCUS INFECTION [None]
  - PLEURAL EFFUSION [None]
  - PYREXIA [None]
  - SEPTIC SHOCK [None]
  - STREPTOCOCCAL INFECTION [None]
  - URINE OUTPUT DECREASED [None]
  - UTERINE CERVICAL PAIN [None]
  - UTERINE TENDERNESS [None]
  - VAGINAL DISCHARGE [None]
  - VAGINAL DISORDER [None]
  - VAGINAL HAEMORRHAGE [None]
  - VOMITING [None]
